FAERS Safety Report 10208692 (Version 1)
Quarter: 2014Q2

REPORT INFORMATION
  Report Type: Spontaneous
  Country: US (occurrence: None)
  Receive Date: 20140528
  Receipt Date: 20140528
  Transmission Date: 20141212
  Serious: No
  Sender: FDA-Public Use
  Company Number: None

PATIENT
  Age: 78 Year
  Sex: Female

DRUGS (1)
  1. SPRYCEL [Suspect]
     Indication: ACUTE MYELOID LEUKAEMIA (IN REMISSION)
     Route: 048
     Dates: start: 20140425

REACTIONS (6)
  - Diarrhoea [None]
  - Nausea [None]
  - Weight decreased [None]
  - Pain in jaw [None]
  - Dyspnoea [None]
  - Incorrect dose administered [None]
